FAERS Safety Report 14753345 (Version 4)
Quarter: 2019Q3

REPORT INFORMATION
  Report Type: Report from Study
  Country: JP (occurrence: JP)
  Receive Date: 20180412
  Receipt Date: 20190715
  Transmission Date: 20191004
  Serious: Yes (Hospitalization)
  Sender: FDA-Public Use
  Company Number: PHJP2018JP008145

PATIENT
  Sex: Male
  Weight: 22 kg

DRUGS (19)
  1. APLACE [Concomitant]
     Active Substance: TROXIPIDE
     Indication: PRODUCT USED FOR UNKNOWN INDICATION
     Dosage: UNK
     Route: 048
  2. BRUFEN [Concomitant]
     Active Substance: IBUPROFEN
     Indication: PRODUCT USED FOR UNKNOWN INDICATION
     Dosage: UNK
     Route: 048
  3. ILARIS [Suspect]
     Active Substance: CANAKINUMAB
     Indication: TUMOUR NECROSIS FACTOR RECEPTOR-ASSOCIATED PERIODIC SYNDROME
     Dosage: 45 MG, UNK
     Route: 058
     Dates: start: 20170515
  4. ILARIS [Suspect]
     Active Substance: CANAKINUMAB
     Dosage: 90 MG, 4W
     Route: 058
     Dates: start: 20170807, end: 20170904
  5. ILARIS [Suspect]
     Active Substance: CANAKINUMAB
     Dosage: 90 MG, UNK
     Route: 058
     Dates: start: 20171002
  6. MEDICON [Concomitant]
     Active Substance: DEXTROMETHORPHAN HYDROBROMIDE
     Indication: PROPHYLAXIS
     Dosage: UNK
     Route: 048
  7. CLARITH [Concomitant]
     Active Substance: CLARITHROMYCIN
     Indication: PROPHYLAXIS
     Dosage: UNK
     Route: 048
  8. ILARIS [Suspect]
     Active Substance: CANAKINUMAB
     Dosage: 90 MG, UNK
     Route: 058
     Dates: start: 20171106
  9. ILARIS [Suspect]
     Active Substance: CANAKINUMAB
     Dosage: 90 MG, UNK
     Route: 058
     Dates: start: 20180219
  10. ALLEGRA [Concomitant]
     Active Substance: FEXOFENADINE HYDROCHLORIDE
     Indication: PROPHYLAXIS
     Dosage: UNK
     Route: 048
  11. ILARIS [Suspect]
     Active Substance: CANAKINUMAB
     Dosage: 90 MG, 4W
     Route: 058
     Dates: start: 20170605, end: 20170719
  12. ZOVIRAX [Concomitant]
     Active Substance: ACYCLOVIR
     Indication: PROPHYLAXIS
     Dosage: UNK
     Route: 048
  13. PREDONINE [Concomitant]
     Active Substance: PREDNISOLONE
     Indication: PRODUCT USED FOR UNKNOWN INDICATION
     Dosage: UNK
     Route: 048
  14. ILARIS [Suspect]
     Active Substance: CANAKINUMAB
     Dosage: 45 MG, UNK
     Route: 058
     Dates: start: 20170605
  15. ILARIS [Suspect]
     Active Substance: CANAKINUMAB
     Dosage: 90 MG, UNK
     Route: 058
     Dates: start: 20171220
  16. ILARIS [Suspect]
     Active Substance: CANAKINUMAB
     Dosage: 90 MG, UNK
     Route: 058
     Dates: start: 20180416
  17. CARBOCISTEINE [Concomitant]
     Active Substance: CARBOCYSTEINE
     Indication: PROPHYLAXIS
     Dosage: UNK
     Route: 048
  18. KIPRES [Concomitant]
     Active Substance: MONTELUKAST SODIUM
     Indication: PRODUCT USED FOR UNKNOWN INDICATION
     Dosage: UNK
     Route: 048
  19. FLUTIDE [Concomitant]
     Active Substance: FLUTICASONE PROPIONATE
     Indication: PRODUCT USED FOR UNKNOWN INDICATION
     Dosage: UNK
     Route: 055

REACTIONS (1)
  - Asthma [Unknown]
